FAERS Safety Report 18780201 (Version 1)
Quarter: 2021Q1

REPORT INFORMATION
  Report Type: Spontaneous
  Country: US (occurrence: US)
  Receive Date: 20210124
  Receipt Date: 20210124
  Transmission Date: 20210419
  Serious: Yes (Life-Threatening, Other)
  Sender: FDA-Public Use
  Company Number: None

PATIENT
  Age: 45 Year
  Sex: Female
  Weight: 90.45 kg

DRUGS (1)
  1. BAMLANIVIMAB. [Suspect]
     Active Substance: BAMLANIVIMAB
     Indication: SARS-COV-2 TEST POSITIVE
     Dosage: ?          OTHER FREQUENCY:ONCE;?
     Route: 041
     Dates: start: 20010107, end: 20010107

REACTIONS (6)
  - Chest X-ray abnormal [None]
  - Brain natriuretic peptide increased [None]
  - Electrocardiogram ST segment abnormal [None]
  - Fibrin D dimer increased [None]
  - C-reactive protein increased [None]
  - Bradycardia [None]

NARRATIVE: CASE EVENT DATE: 20010110
